FAERS Safety Report 25475760 (Version 1)
Quarter: 2025Q2

REPORT INFORMATION
  Report Type: Spontaneous
  Country: BE (occurrence: BE)
  Receive Date: 20250624
  Receipt Date: 20250624
  Transmission Date: 20250717
  Serious: Yes (Hospitalization)
  Sender: UCB
  Company Number: BE-BPPPROD-2023000689

PATIENT
  Age: 59 Year
  Sex: Male
  Weight: 98 kg

DRUGS (9)
  1. KEPPRA [Suspect]
     Active Substance: LEVETIRACETAM
     Indication: Product used for unknown indication
     Route: 048
     Dates: start: 202405, end: 202406
  2. PITOLISANT HYDROCHLORIDE [Suspect]
     Active Substance: PITOLISANT HYDROCHLORIDE
     Indication: Obstructive sleep apnoea syndrome
     Route: 048
     Dates: start: 20230908, end: 20230915
  3. PITOLISANT HYDROCHLORIDE [Suspect]
     Active Substance: PITOLISANT HYDROCHLORIDE
     Route: 048
     Dates: start: 20230916, end: 20230922
  4. PITOLISANT HYDROCHLORIDE [Suspect]
     Active Substance: PITOLISANT HYDROCHLORIDE
     Route: 048
     Dates: start: 20230923, end: 20240603
  5. GABAPENTIN [Suspect]
     Active Substance: GABAPENTIN
     Indication: Product used for unknown indication
     Route: 048
  6. GABAPENTIN [Suspect]
     Active Substance: GABAPENTIN
     Route: 048
  7. PAROXETINE HYDROCHLORIDE [Suspect]
     Active Substance: PAROXETINE HYDROCHLORIDE
     Indication: Product used for unknown indication
     Route: 048
  8. MIRTAZAPINE [Concomitant]
     Active Substance: MIRTAZAPINE
     Indication: Product used for unknown indication
     Route: 048
  9. DOMPERIDONE\PANTOPRAZOLE SODIUM [Concomitant]
     Active Substance: DOMPERIDONE\PANTOPRAZOLE SODIUM
     Indication: Product used for unknown indication
     Route: 048

REACTIONS (6)
  - Epilepsy [Recovered/Resolved]
  - Headache [Recovered/Resolved]
  - Dizziness [Recovered/Resolved]
  - Fatigue [Recovered/Resolved]
  - Weight increased [Recovered/Resolved]
  - Therapy cessation [Unknown]

NARRATIVE: CASE EVENT DATE: 20230908
